FAERS Safety Report 12557741 (Version 3)
Quarter: 2016Q3

REPORT INFORMATION
  Report Type: Spontaneous
  Country: FR (occurrence: FR)
  Receive Date: 20160714
  Receipt Date: 20160819
  Transmission Date: 20161109
  Serious: Yes (Hospitalization)
  Sender: FDA-Public Use
  Company Number: FR-JNJFOC-20160702811

PATIENT
  Age: 72 Year
  Sex: Female

DRUGS (14)
  1. YONDELIS [Suspect]
     Active Substance: TRABECTEDIN
     Indication: BILE DUCT ADENOCARCINOMA
     Dosage: CYCLE 3
     Route: 042
     Dates: start: 20160726
  2. CAELYX [Suspect]
     Active Substance: DOXORUBICIN HYDROCHLORIDE
     Indication: BILE DUCT ADENOCARCINOMA
     Dosage: FCZTR01
     Route: 042
     Dates: start: 20160525, end: 20160525
  3. CAELYX [Suspect]
     Active Substance: DOXORUBICIN HYDROCHLORIDE
     Indication: BILE DUCT ADENOCARCINOMA
     Dosage: CYCLE 3
     Route: 042
     Dates: start: 20160726
  4. APREPITANT. [Concomitant]
     Active Substance: APREPITANT
     Indication: PREMEDICATION
     Route: 042
     Dates: start: 20160525, end: 20160525
  5. G-CSF [Concomitant]
     Active Substance: GRANULOCYTE COLONY-STIMULATING FACTOR NOS
     Route: 065
  6. PLITICAN [Concomitant]
     Active Substance: ALIZAPRIDE HYDROCHLORIDE
     Indication: PREMEDICATION
     Route: 042
     Dates: start: 20160705
  7. PLITICAN [Concomitant]
     Active Substance: ALIZAPRIDE HYDROCHLORIDE
     Indication: PREMEDICATION
     Route: 042
     Dates: start: 20160525, end: 20160525
  8. YONDELIS [Suspect]
     Active Substance: TRABECTEDIN
     Indication: BILE DUCT ADENOCARCINOMA
     Route: 042
     Dates: start: 20160525, end: 20160525
  9. DEXAMETHASONE. [Concomitant]
     Active Substance: DEXAMETHASONE
     Indication: PREMEDICATION
     Route: 042
     Dates: start: 20160525, end: 20160525
  10. CAELYX [Suspect]
     Active Substance: DOXORUBICIN HYDROCHLORIDE
     Indication: BILE DUCT ADENOCARCINOMA
     Dosage: (DOSE DECREASED BY 22.9%), CYCLE 2
     Route: 042
     Dates: start: 20160705
  11. YONDELIS [Suspect]
     Active Substance: TRABECTEDIN
     Indication: BILE DUCT ADENOCARCINOMA
     Dosage: (DOSE DECREASED BY 25.79%); CYCLE 2
     Route: 042
     Dates: start: 20160705
  12. DEXAMETHASONE. [Concomitant]
     Active Substance: DEXAMETHASONE
     Indication: PREMEDICATION
     Route: 042
     Dates: start: 20160705
  13. ZOPHREN [Concomitant]
     Active Substance: ONDANSETRON
     Indication: PREMEDICATION
     Route: 042
     Dates: start: 20160525, end: 20160525
  14. ZOPHREN [Concomitant]
     Active Substance: ONDANSETRON
     Indication: PREMEDICATION
     Route: 042
     Dates: start: 20160705

REACTIONS (7)
  - Sinus tachycardia [Recovered/Resolved]
  - Febrile neutropenia [Unknown]
  - Fatigue [Not Recovered/Not Resolved]
  - Chest discomfort [Recovered/Resolved]
  - Febrile bone marrow aplasia [Recovered/Resolved]
  - Vertigo [Recovered/Resolved]
  - Headache [Recovered/Resolved]

NARRATIVE: CASE EVENT DATE: 20160525
